FAERS Safety Report 7270944-4 (Version None)
Quarter: 2011Q1

REPORT INFORMATION
  Report Type: 
  Country: None (occurrence: None)
  Receive Date: 20110202
  Receipt Date: 20110108
  Transmission Date: 20110831
  Serious: No
  Sender: FDA-Public Use
  Company Number: US-BAYER-2011-003652

PATIENT
  Sex: Female
  Weight: 54 kg

DRUGS (2)
  1. TRAMADOL HYDROCHLORIDE [Suspect]
     Dosage: 50 MG
  2. ALEVE (CAPLET) [Suspect]
     Indication: SKIN ULCER
     Route: 048

REACTIONS (2)
  - DECREASED APPETITE [None]
  - DYSPHAGIA [None]
